FAERS Safety Report 4890683-4 (Version None)
Quarter: 2006Q1

REPORT INFORMATION
  Report Type: 
  Country: None (occurrence: None)
  Receive Date: 20060125
  Receipt Date: 20020418
  Transmission Date: 20060701
  Serious: Yes (Hospitalization, Other)
  Sender: FDA-Public Use
  Company Number: US-BRISTOL-MYERS SQUIBB COMPANY-11832417

PATIENT
  Age: 35 Year
  Sex: Female

DRUGS (6)
  1. STADOL [Suspect]
     Indication: MIGRAINE
     Route: 045
     Dates: start: 19940418
  2. IMITREX [Concomitant]
     Indication: MIGRAINE
  3. INDERAL LA [Concomitant]
  4. DEMEROL [Concomitant]
  5. PHENERGAN [Concomitant]
  6. FIORICET [Concomitant]

REACTIONS (2)
  - CHEST PAIN [None]
  - DEPENDENCE [None]
